FAERS Safety Report 12416013 (Version 1)
Quarter: 2016Q2

REPORT INFORMATION
  Report Type: Spontaneous
  Country: BR (occurrence: BR)
  Receive Date: 20160530
  Receipt Date: 20160530
  Transmission Date: 20160815
  Serious: Yes (Hospitalization, Other)
  Sender: FDA-Public Use
  Company Number: BR-AMGEN-BRASP2016066863

PATIENT
  Age: 61 Year
  Sex: Female
  Weight: 53 kg

DRUGS (6)
  1. TRAMADOL. [Concomitant]
     Active Substance: TRAMADOL
  2. TYLEX [Suspect]
     Active Substance: ACETAMINOPHEN\CODEINE PHOSPHATE
     Indication: PAIN
     Dosage: UNK
     Route: 065
     Dates: start: 2015, end: 201603
  3. MORPHINE [Concomitant]
     Active Substance: MORPHINE
  4. VITAMIN D [Concomitant]
     Active Substance: CHOLECALCIFEROL
  5. CALCIUM [Concomitant]
     Active Substance: CALCIUM
  6. PROLIA [Suspect]
     Active Substance: DENOSUMAB
     Indication: BONE DEFORMITY
     Dosage: 60 MG, Q6MO
     Route: 065

REACTIONS (8)
  - Fall [Recovering/Resolving]
  - Dysstasia [Recovering/Resolving]
  - Device fastener issue [Recovering/Resolving]
  - Mobility decreased [Recovering/Resolving]
  - Pain [Recovered/Resolved]
  - Off label use [Unknown]
  - Spinal cord injury [Recovering/Resolving]
  - Hallucination [Recovered/Resolved]

NARRATIVE: CASE EVENT DATE: 2015
